FAERS Safety Report 12737420 (Version 4)
Quarter: 2017Q1

REPORT INFORMATION
  Report Type: Spontaneous
  Country: US (occurrence: US)
  Receive Date: 20160913
  Receipt Date: 20170320
  Transmission Date: 20170428
  Serious: Yes (Other)
  Sender: FDA-Public Use
  Company Number: US-BAYER-2016-177622

PATIENT
  Age: 64 Year
  Sex: Male

DRUGS (6)
  1. ASPIRIN. [Concomitant]
     Active Substance: ASPIRIN
  2. VITAMIN B12 [Concomitant]
     Active Substance: CYANOCOBALAMIN
  3. NEXAVAR [Suspect]
     Active Substance: SORAFENIB
     Indication: HEPATOCELLULAR CARCINOMA
     Dosage: 400 MG, BID
     Route: 048
     Dates: start: 20160907
  4. IRON [Concomitant]
     Active Substance: IRON
  5. GABAPENTIN. [Concomitant]
     Active Substance: GABAPENTIN
  6. POTASSIUM [Concomitant]
     Active Substance: POTASSIUM

REACTIONS (8)
  - Constipation [Recovered/Resolved]
  - Asthenia [Unknown]
  - Pyrexia [Recovered/Resolved]
  - Headache [Not Recovered/Not Resolved]
  - Influenza [Recovered/Resolved]
  - Vomiting [None]
  - Pain of skin [Not Recovered/Not Resolved]
  - Condition aggravated [None]

NARRATIVE: CASE EVENT DATE: 2016
